FAERS Safety Report 4374468-3 (Version None)
Quarter: 2004Q2

REPORT INFORMATION
  Report Type: 
  Country: None (occurrence: None)
  Receive Date: 20040602
  Receipt Date: 20040309
  Transmission Date: 20050107
  Serious: No
  Sender: FDA-Public Use
  Company Number: 200415001BWH

PATIENT
  Age: 56 Year
  Sex: Male
  Weight: 97.0698 kg

DRUGS (2)
  1. LEVITRA [Suspect]
     Dosage: 10 MG, TOTAL DAILY, ORAL
     Route: 048
     Dates: start: 20040211
  2. METFORMIN HCL [Concomitant]

REACTIONS (4)
  - BURNING SENSATION [None]
  - ERECTILE DYSFUNCTION [None]
  - ERYTHEMA [None]
  - NASAL CONGESTION [None]
